FAERS Safety Report 6573418-9 (Version None)
Quarter: 2010Q1

REPORT INFORMATION
  Report Type: 
  Country: None (occurrence: None)
  Receive Date: 20100204
  Receipt Date: 20100204
  Transmission Date: 20100710
  Serious: Yes (Other)
  Sender: FDA-Public Use
  Company Number: None

PATIENT
  Sex: Female
  Weight: 68.0396 kg

DRUGS (1)
  1. ISONIAZID TAB [Suspect]
     Indication: SKIN TEST POSITIVE
     Dosage: 1 EVERYDAY MOUTH
     Route: 048
     Dates: start: 20090901, end: 20091201

REACTIONS (1)
  - VISUAL ACUITY REDUCED [None]
